FAERS Safety Report 9670031 (Version 5)
Quarter: 2014Q1

REPORT INFORMATION
  Report Type: Spontaneous
  Country: US (occurrence: US)
  Receive Date: 20131105
  Receipt Date: 20140108
  Transmission Date: 20141002
  Serious: Yes (Other)
  Sender: FDA-Public Use
  Company Number: US-PFIZER INC-2013314216

PATIENT
  Age: 88 Year
  Sex: Female
  Weight: 47.62 kg

DRUGS (13)
  1. LIPITOR [Suspect]
     Indication: BLOOD CHOLESTEROL INCREASED
     Dosage: UNK MG, DAILY
     Route: 048
     Dates: start: 201309, end: 201310
  2. LIPITOR [Suspect]
     Indication: CORONARY ARTERY DISEASE
     Dosage: 80 MG, DAILY
     Route: 048
     Dates: start: 20130909, end: 20130910
  3. PLAVIX [Concomitant]
     Dosage: 75 MG, DAILY
     Route: 048
     Dates: start: 20131018
  4. LASIX [Concomitant]
     Indication: CORONARY ARTERY DISEASE
     Dosage: 20 MG, DAILY
     Route: 048
     Dates: start: 20130820
  5. LASIX [Concomitant]
     Indication: CORONARY ANGIOPLASTY
  6. ECOTRIN [Concomitant]
     Indication: MYOCARDIAL INFARCTION
     Dosage: 81 MG, DAILY
     Route: 048
     Dates: start: 20130819
  7. LOPRESSOR [Concomitant]
     Dosage: 12.5 MG, 2X/DAY
     Route: 048
     Dates: start: 20131018
  8. DOCOSAHEXAENOIC ACID AND EICOSAPENTAENOIC ACID [Concomitant]
     Dosage: UNK
     Route: 048
  9. MAG-OX [Concomitant]
     Indication: CORONARY ARTERY DISEASE
     Dosage: 400 MG, 2X/DAY
     Route: 048
     Dates: start: 20130820
  10. MAG-OX [Concomitant]
     Indication: CORONARY ANGIOPLASTY
  11. NITROSTAT [Concomitant]
     Indication: CHEST PAIN
     Dosage: 0.4 MG, AS NEEDED
     Route: 060
     Dates: start: 20130812
  12. PROTONIX [Concomitant]
     Dosage: 40 MG, 2X/DAY
     Route: 048
     Dates: start: 20130812
  13. COLACE [Concomitant]
     Dosage: 100 MG, 2X/DAY
     Route: 048
     Dates: start: 20130219

REACTIONS (5)
  - Asthenia [Unknown]
  - Muscular weakness [Recovering/Resolving]
  - Liver injury [Unknown]
  - Activities of daily living impaired [Unknown]
  - Liver function test abnormal [Unknown]
